FAERS Safety Report 25249711 (Version 1)
Quarter: 2025Q2

REPORT INFORMATION
  Report Type: Spontaneous
  Country: GB (occurrence: GB)
  Receive Date: 20250429
  Receipt Date: 20250429
  Transmission Date: 20250716
  Serious: Yes (Hospitalization, Congenital Anomaly, Other)
  Sender: AUROBINDO
  Company Number: GB-APOTEX-2005AP000957

PATIENT
  Age: 12 Hour
  Sex: Female
  Weight: 4 kg

DRUGS (2)
  1. PAROXETINE [Suspect]
     Active Substance: PAROXETINE
     Indication: Product used for unknown indication
     Route: 064
  2. CHLORPROMAZINE [Suspect]
     Active Substance: CHLORPROMAZINE
     Indication: Product used for unknown indication
     Dosage: 50 MILLIGRAM, ONCE A DAY
     Route: 064

REACTIONS (18)
  - Neonatal respiratory distress [Recovered/Resolved]
  - Tonic clonic movements [Recovered/Resolved]
  - Tremor [Recovered/Resolved]
  - Hypertonia neonatal [Recovered/Resolved]
  - Hyperreflexia [Recovered/Resolved]
  - Opisthotonus [Recovered/Resolved]
  - Serotonin syndrome [Recovered/Resolved]
  - Drug withdrawal syndrome neonatal [Recovered/Resolved]
  - Seizure [Recovered/Resolved]
  - Dyskinesia [Recovered/Resolved]
  - Tachypnoea [Recovered/Resolved]
  - Decreased appetite [Recovered/Resolved]
  - Use of accessory respiratory muscles [Recovered/Resolved]
  - Psychomotor hyperactivity [Recovered/Resolved]
  - Feeling jittery [Recovered/Resolved]
  - Polycythaemia [Recovered/Resolved]
  - Pyrexia [Recovered/Resolved]
  - Foetal exposure during pregnancy [Unknown]
